FAERS Safety Report 12607416 (Version 1)
Quarter: 2016Q3

REPORT INFORMATION
  Report Type: Spontaneous
  Country: BR (occurrence: BR)
  Receive Date: 20160729
  Receipt Date: 20160729
  Transmission Date: 20161109
  Serious: Yes (Hospitalization, Other)
  Sender: FDA-Public Use
  Company Number: BR-PFIZER INC-2016362465

PATIENT
  Age: 82 Year
  Sex: Male
  Weight: 71 kg

DRUGS (11)
  1. SYNTHROID [Concomitant]
     Active Substance: LEVOTHYROXINE SODIUM
     Indication: THYROID DISORDER
  2. ANGIPRESS [Concomitant]
     Active Substance: ATENOLOL
     Indication: CARDIAC DISORDER
     Dosage: 50 MG, 1 TABLET DAILY AT FASTENING
     Route: 048
     Dates: start: 2011
  3. LANZOPRAZOL [Concomitant]
     Active Substance: LANSOPRAZOLE
     Indication: ABDOMINAL DISCOMFORT
     Dosage: 40 MG, 1 TABLET AT FASTENING
     Route: 048
  4. CRESTOR [Concomitant]
     Active Substance: ROSUVASTATIN CALCIUM
     Indication: BLOOD CHOLESTEROL
     Dosage: 10 MG, 1 TABLET PER DAY
     Route: 048
     Dates: start: 201506
  5. EFFEXOR XR [Suspect]
     Active Substance: VENLAFAXINE HYDROCHLORIDE
     Indication: DEPRESSION
     Dosage: 75 MG, 1X/DAY
     Route: 048
     Dates: start: 201506
  6. EFFEXOR XR [Suspect]
     Active Substance: VENLAFAXINE HYDROCHLORIDE
     Indication: STRESS
  7. LOSARTAN. [Concomitant]
     Active Substance: LOSARTAN
     Indication: BLOOD PRESSURE INCREASED
     Dosage: UNK
     Route: 048
     Dates: start: 201506
  8. ATENOLOL. [Concomitant]
     Active Substance: ATENOLOL
     Indication: BLOOD PRESSURE INCREASED
     Dosage: UNK
     Route: 048
     Dates: start: 201506
  9. SOMALGIN CARDIO [Concomitant]
     Active Substance: ASPIRIN\DIHYDROXYALUMINUM AMINOACETATE ANHYDROUS\MAGNESIUM CARBONATE
     Indication: ANTICOAGULANT THERAPY
     Dosage: UNK, 1X/DAY
     Route: 048
     Dates: start: 201506
  10. SYNTHROID [Concomitant]
     Active Substance: LEVOTHYROXINE SODIUM
     Indication: HORMONE REPLACEMENT THERAPY
     Dosage: 1 DF, 1 TABLET PER DAY AT FASTENING
     Route: 048
     Dates: start: 201306
  11. CLOPIDOGREL BISULFATE. [Concomitant]
     Active Substance: CLOPIDOGREL BISULFATE
     Indication: ANTICOAGULANT THERAPY
     Dosage: 1 DF, 1 TABLET PER DAY
     Route: 048
     Dates: start: 201506

REACTIONS (9)
  - Depression [Unknown]
  - Dizziness [Unknown]
  - Blindness [Unknown]
  - Drug ineffective [Unknown]
  - Malaise [Unknown]
  - Activities of daily living impaired [Unknown]
  - Eye disorder [Unknown]
  - Decreased appetite [Unknown]
  - Hallucination, visual [Unknown]
